FAERS Safety Report 6760971-5 (Version None)
Quarter: 2010Q2

REPORT INFORMATION
  Report Type: 
  Country: None (occurrence: None)
  Receive Date: 20100608
  Receipt Date: 20100601
  Transmission Date: 20101027
  Serious: Yes (Other)
  Sender: FDA-Public Use
  Company Number: B0659309A

PATIENT
  Age: 28 Year
  Sex: Female

DRUGS (2)
  1. ERYTHROMYCIN [Suspect]
  2. PARACETAMOL [Suspect]

REACTIONS (1)
  - TOXIC EPIDERMAL NECROLYSIS [None]
